FAERS Safety Report 6381849-5 (Version None)
Quarter: 2009Q3

REPORT INFORMATION
  Report Type: 
  Country: None (occurrence: None)
  Receive Date: 20090930
  Receipt Date: 20090928
  Transmission Date: 20100115
  Serious: Yes (Life-Threatening)
  Sender: FDA-Public Use
  Company Number: GB-JNJFOC-20090908078

PATIENT
  Age: 17 Year
  Sex: Male

DRUGS (3)
  1. HALOPERIDOL [Suspect]
     Indication: AGITATION
     Route: 048
     Dates: start: 20090919
  2. ARIPIPRAZOLE [Suspect]
     Indication: PSYCHOTIC DISORDER
     Route: 048
     Dates: start: 20090918
  3. ZOPICLONE [Suspect]
     Indication: INSOMNIA
     Route: 048
     Dates: start: 20090919

REACTIONS (1)
  - ANAPHYLACTIC REACTION [None]
